FAERS Safety Report 9230338 (Version 1)
Quarter: 2013Q2

REPORT INFORMATION
  Report Type: Other
  Country: VE (occurrence: VE)
  Receive Date: 20130415
  Receipt Date: 20130415
  Transmission Date: 20140414
  Serious: Yes (Hospitalization)
  Sender: FDA-Public Use
  Company Number: PHHY2011VE097618

PATIENT
  Age: 61 Year
  Sex: Female

DRUGS (9)
  1. ACLASTA [Suspect]
     Indication: OSTEOPOROSIS
     Dosage: 5 MG, ONCE A YEAR
     Route: 042
     Dates: start: 201008
  2. ACLASTA [Suspect]
     Dosage: 5 MG, ONCE A YEAR
     Route: 042
     Dates: start: 201108
  3. IDEOS [Concomitant]
     Dosage: 2 DF, 2 CHEWING TABLET DAILY
  4. LEXOTANIL [Concomitant]
     Dosage: 3 MG, DAILY AT 6 PM
  5. TRILEPTAL [Concomitant]
     Indication: ARRHYTHMIA
     Dosage: 9 MG, TWICE A DAY
  6. MICROSER [Concomitant]
     Dosage: 8 MG, TWICE A DAY
  7. B COMPLEX [Concomitant]
     Dosage: 1 DF, DAILY
  8. FOLIC ACID [Concomitant]
     Dosage: 10 MG, ONE TABLET DAILY
  9. DOLOGESIC [Concomitant]
     Dosage: 400 MG, EACH 8 HOURS

REACTIONS (1)
  - No adverse event [Unknown]
